FAERS Safety Report 24114602 (Version 1)
Quarter: 2024Q3

REPORT INFORMATION
  Report Type: Spontaneous
  Country: SI (occurrence: SI)
  Receive Date: 20240720
  Receipt Date: 20240720
  Transmission Date: 20241017
  Serious: Yes (Death, Other)
  Sender: ARGENX BVBA
  Company Number: SI-Medison-000252

PATIENT

DRUGS (1)
  1. VYVGART [Suspect]
     Active Substance: EFGARTIGIMOD ALFA-FCAB
     Indication: Myasthenia gravis
     Dosage: 10 MG/ML PER KG
     Route: 042

REACTIONS (2)
  - Anaphylactic reaction [Fatal]
  - Infection [Recovered/Resolved]
